FAERS Safety Report 10947315 (Version 1)
Quarter: 2015Q1

REPORT INFORMATION
  Report Type: Spontaneous
  Country: US (occurrence: None)
  Receive Date: 20150212
  Receipt Date: 20150212
  Transmission Date: 20150721
  Serious: No
  Sender: FDA-Public Use
  Company Number: TPA2012A00384

PATIENT
  Age: 35 Year
  Sex: Male
  Weight: 111.13 kg

DRUGS (4)
  1. SIMVASTATIN (SIMVASTATIN) [Concomitant]
     Active Substance: SIMVASTATIN
  2. DIOVAN [Concomitant]
     Active Substance: VALSARTAN
  3. TRICOR [Concomitant]
     Active Substance: FENOFIBRATE
  4. ULORIC [Suspect]
     Active Substance: FEBUXOSTAT
     Indication: GOUT
     Dosage: 1 IN 1 DAY
     Route: 048
     Dates: start: 20111018, end: 20120114

REACTIONS (1)
  - Back pain [None]

NARRATIVE: CASE EVENT DATE: 201110
